FAERS Safety Report 11874010 (Version 1)
Quarter: 2015Q4

REPORT INFORMATION
  Report Type: Spontaneous
  Country: US (occurrence: US)
  Receive Date: 20151229
  Receipt Date: 20151229
  Transmission Date: 20160305
  Serious: Yes (Death, Other)
  Sender: FDA-Public Use
  Company Number: US-CIPLA LTD.-2015US09702

PATIENT

DRUGS (1)
  1. RISPERIDONE. [Suspect]
     Active Substance: RISPERIDONE
     Route: 064

REACTIONS (5)
  - Cytomegalovirus infection [Fatal]
  - Herpes simplex [Fatal]
  - Foetal exposure during pregnancy [Unknown]
  - Congenital toxoplasmosis [Fatal]
  - Rubella [Fatal]
